FAERS Safety Report 18557003 (Version 1)
Quarter: 2020Q4

REPORT INFORMATION
  Report Type: Other
  Country: GB (occurrence: GB)
  Receive Date: 20201129
  Receipt Date: 20201129
  Transmission Date: 20210114
  Serious: Yes (Other)
  Sender: FDA-Public Use
  Company Number: GB-LUPIN PHARMACEUTICALS INC.-2020-09505

PATIENT
  Age: 26 Year
  Sex: Male

DRUGS (1)
  1. SERTRALINE [Suspect]
     Active Substance: SERTRALINE HYDROCHLORIDE
     Indication: PRODUCT USED FOR UNKNOWN INDICATION
     Dosage: UNK (50)
     Route: 048
     Dates: start: 20200827, end: 20201013

REACTIONS (4)
  - Dizziness [Recovered/Resolved with Sequelae]
  - Hot flush [Unknown]
  - Cold sweat [Recovered/Resolved with Sequelae]
  - Hyperhidrosis [Unknown]

NARRATIVE: CASE EVENT DATE: 20200827
